FAERS Safety Report 4313962-8 (Version None)
Quarter: 2004Q1

REPORT INFORMATION
  Report Type: 
  Country: None (occurrence: None)
  Receive Date: 20040305
  Receipt Date: 20040223
  Transmission Date: 20041129
  Serious: Yes (Life-Threatening, Hospitalization, Other)
  Sender: FDA-Public Use
  Company Number: 2003115468

PATIENT
  Age: 58 Year
  Sex: Female
  Weight: 49.8 kg

DRUGS (4)
  1. FLUCONAZOLE [Suspect]
     Indication: FUNGAL INFECTION
     Dosage: 400 MG
     Dates: end: 20010203
  2. CYTARABINE [Suspect]
     Indication: ACUTE MYELOID LEUKAEMIA
     Dates: start: 20001201, end: 20010101
  3. IDARUBICIN HCL [Suspect]
     Indication: ACUTE MYELOID LEUKAEMIA
     Dates: start: 20001201, end: 20001201
  4. MITOXANTRONE [Suspect]
     Indication: ACUTE MYELOID LEUKAEMIA
     Dates: start: 20010101, end: 20010101

REACTIONS (14)
  - ASPERGILLOSIS [None]
  - BLOOD BETA-D-GLUCAN INCREASED [None]
  - BLOOD TRIGLYCERIDES INCREASED [None]
  - DRUG INEFFECTIVE [None]
  - DYSPHAGIA [None]
  - DYSPNOEA [None]
  - FUNGAL INFECTION [None]
  - LEUKOPENIA [None]
  - MALAISE [None]
  - PYREXIA [None]
  - RENAL IMPAIRMENT [None]
  - STOMATITIS [None]
  - SYSTEMIC MYCOSIS [None]
  - WHITE BLOOD CELL COUNT DECREASED [None]
